FAERS Safety Report 11043067 (Version 1)
Quarter: 2015Q2

REPORT INFORMATION
  Report Type: Report from Study
  Country: NL (occurrence: NL)
  Receive Date: 20150417
  Receipt Date: 20150417
  Transmission Date: 20150821
  Serious: Yes (Death)
  Sender: FDA-Public Use
  Company Number: NL-AMGEN-NLDSL2015035292

PATIENT
  Age: 54 Year
  Sex: Female

DRUGS (2)
  1. ARANESP [Suspect]
     Active Substance: DARBEPOETIN ALFA
     Indication: ANAEMIA
     Dosage: 500 MCG/ML, EVERY 3 WEEKS
     Route: 058
     Dates: start: 20150110
  2. NEULASTA [Suspect]
     Active Substance: PEGFILGRASTIM
     Indication: PROPHYLAXIS
     Dosage: 10 MG/ML, WWSP 0.6 ML, EVERY 3 WEEKS
     Route: 058
     Dates: start: 20150110

REACTIONS (1)
  - Death [Fatal]
